FAERS Safety Report 8813008 (Version 1)
Quarter: 2012Q4

REPORT INFORMATION
  Report Type: 
  Country: US (occurrence: US)
  Receive Date: 20120927
  Receipt Date: 20120927
  Transmission Date: 20130627
  Serious: No
  Sender: FDA-Public Use
  Company Number: US-AMGEN-USASP2012034710

PATIENT
  Age: 41 Year
  Sex: Female

DRUGS (6)
  1. PROLIA [Suspect]
     Indication: OSTEOPOROSIS POSTMENOPAUSAL
     Dosage: 60 mg, q6mo
     Dates: start: 201110
  2. AMBIEN [Concomitant]
  3. ZOLOFT [Concomitant]
  4. METOPROLOL [Concomitant]
  5. KLONOPIN [Concomitant]
  6. TETRAZOLE CREAM [Concomitant]

REACTIONS (3)
  - Pyrexia [Recovered/Resolved]
  - Fungal infection [Unknown]
  - Urinary tract infection [Unknown]
